FAERS Safety Report 6421050-X (Version None)
Quarter: 2009Q4

REPORT INFORMATION
  Report Type: 
  Country: None (occurrence: None)
  Receive Date: 20091030
  Receipt Date: 20091019
  Transmission Date: 20100525
  Serious: Yes (Death)
  Sender: FDA-Public Use
  Company Number: US-ROCHE-663840

PATIENT
  Sex: Male

DRUGS (1)
  1. FUZEON [Suspect]
     Route: 065

REACTIONS (1)
  - DEATH [None]
